FAERS Safety Report 15660078 (Version 2)
Quarter: 2020Q1

REPORT INFORMATION
  Report Type: Spontaneous
  Country: CA (occurrence: CA)
  Receive Date: 20181127
  Receipt Date: 20200218
  Transmission Date: 20200409
  Serious: Yes (Hospitalization)
  Sender: FDA-Public Use
  Company Number: CA-CELLTRION INC.-2018CA022975

PATIENT

DRUGS (19)
  1. INFLECTRA [Suspect]
     Active Substance: INFLIXIMAB-DYYB
     Indication: COLITIS ULCERATIVE
     Dosage: 400 MG, EVERY 0-2-4 WEEKS, THEN EVERY 4 WEEKS
     Route: 042
     Dates: start: 20181003
  2. INFLECTRA [Suspect]
     Active Substance: INFLIXIMAB-DYYB
     Dosage: 400 MG, EVERY 0,2 WEEKS, THEN EVERY 4 WEEKS
     Route: 042
     Dates: start: 20190220
  3. INFLECTRA [Suspect]
     Active Substance: INFLIXIMAB-DYYB
     Dosage: 400 MG, EVERY 0,2 WEEKS, THEN EVERY 4 WEEKS
     Route: 042
     Dates: start: 20191211
  4. INFLECTRA [Suspect]
     Active Substance: INFLIXIMAB-DYYB
     Dosage: 400 MG, EVERY 0,2 WEEKS, THEN EVERY 4 WEEKS
     Route: 042
     Dates: start: 20190123
  5. INFLECTRA [Suspect]
     Active Substance: INFLIXIMAB-DYYB
     Dosage: 400 MG, EVERY 0,2 WEEKS, THEN EVERY 4 WEEKS
     Route: 042
     Dates: start: 20190320
  6. INFLECTRA [Suspect]
     Active Substance: INFLIXIMAB-DYYB
     Dosage: 400 MG, EVERY 0,2 WEEKS, THEN EVERY 4 WEEKS
     Route: 042
     Dates: start: 20190417
  7. INFLECTRA [Suspect]
     Active Substance: INFLIXIMAB-DYYB
     Dosage: 400 MG, EVERY 0,2 WEEKS, THEN EVERY 4 WEEKS
     Route: 042
     Dates: start: 20190710
  8. VIBERZI [Concomitant]
     Active Substance: ELUXADOLINE
     Dosage: 1 DF (TABLET), DAILY
     Route: 048
     Dates: start: 201809
  9. INFLECTRA [Suspect]
     Active Substance: INFLIXIMAB-DYYB
     Dosage: 400 MG, EVERY 0,2 WEEKS, THEN EVERY 4 WEEKS
     Route: 042
     Dates: start: 20190821
  10. CODEINE [Concomitant]
     Active Substance: CODEINE
     Dosage: 6 DF (TABLET) DAILY
     Route: 048
  11. INFLECTRA [Suspect]
     Active Substance: INFLIXIMAB-DYYB
     Dosage: 400 MG, EVERY 0,2 WEEKS, THEN EVERY 4 WEEKS
     Route: 042
     Dates: start: 20190710
  12. INFLECTRA [Suspect]
     Active Substance: INFLIXIMAB-DYYB
     Dosage: 400 MG, EVERY 0,2 WEEKS, THEN EVERY 4 WEEKS
     Route: 042
     Dates: start: 20191016
  13. INFLECTRA [Suspect]
     Active Substance: INFLIXIMAB-DYYB
     Dosage: 400 MG, EVERY 0,2 WEEKS, THEN EVERY 4 WEEKS
     Route: 042
     Dates: start: 20190918
  14. INFLECTRA [Suspect]
     Active Substance: INFLIXIMAB-DYYB
     Dosage: 400 MG, EVERY 0,2 WEEKS, THEN EVERY 4 WEEKS
     Route: 042
     Dates: start: 20181017
  15. INFLECTRA [Suspect]
     Active Substance: INFLIXIMAB-DYYB
     Dosage: 400 MG, EVERY 0,2 WEEKS, THEN EVERY 4 WEEKS
     Route: 042
     Dates: start: 20181114
  16. INFLECTRA [Suspect]
     Active Substance: INFLIXIMAB-DYYB
     Dosage: 400 MG, EVERY 0,2 WEEKS, THEN EVERY 4 WEEKS
     Route: 042
     Dates: start: 20181114
  17. INFLECTRA [Suspect]
     Active Substance: INFLIXIMAB-DYYB
     Dosage: 400 MG, EVERY 0,2 WEEKS, THEN EVERY 4 WEEKS
     Route: 042
     Dates: start: 20200108
  18. INFLECTRA [Suspect]
     Active Substance: INFLIXIMAB-DYYB
     Dosage: 400 MG, EVERY 0,2 WEEKS, THEN EVERY 4 WEEKS
     Route: 042
     Dates: start: 20200205
  19. IMURAN [Concomitant]
     Active Substance: AZATHIOPRINE
     Dosage: 150 MG, DAILY
     Route: 048
     Dates: start: 201809

REACTIONS (7)
  - Malaise [Recovered/Resolved]
  - Off label use [Unknown]
  - Condition aggravated [Not Recovered/Not Resolved]
  - Diarrhoea [Not Recovered/Not Resolved]
  - Dehydration [Unknown]
  - Pyrexia [Recovered/Resolved]
  - Chills [Recovered/Resolved]

NARRATIVE: CASE EVENT DATE: 201902
